FAERS Safety Report 6122388-6 (Version None)
Quarter: 2009Q1

REPORT INFORMATION
  Report Type: 
  Country: None (occurrence: None)
  Receive Date: 20090318
  Receipt Date: 20090203
  Transmission Date: 20090719
  Serious: No
  Sender: FDA-Public Use
  Company Number: US-ASTRAZENECA-2009UW03225

PATIENT
  Age: 64 Year
  Sex: Female
  Weight: 95.3 kg

DRUGS (4)
  1. SYMBICORT [Suspect]
     Dosage: 80/4.5 TWO PUFFS TWICE A DAY
     Route: 055
  2. CYMBALTA [Concomitant]
     Route: 048
  3. XANAX [Concomitant]
     Route: 048
  4. COUMADIN [Concomitant]
     Route: 048

REACTIONS (2)
  - MICTURITION URGENCY [None]
  - POLLAKIURIA [None]
